FAERS Safety Report 8918825 (Version 1)
Quarter: 2012Q4

REPORT INFORMATION
  Report Type: Spontaneous
  Country: US (occurrence: None)
  Receive Date: 20121115
  Receipt Date: 20121115
  Transmission Date: 20130627
  Serious: Yes (Other)
  Sender: FDA-Public Use
  Company Number: None

PATIENT
  Age: 33 Year
  Sex: Female
  Weight: 58.97 kg

DRUGS (1)
  1. MIRENA [Suspect]
     Indication: CONTRACEPTION
     Dates: start: 20120906, end: 20121105

REACTIONS (7)
  - Device difficult to use [None]
  - Procedural pain [None]
  - Malaise [None]
  - Presyncope [None]
  - Device dislocation [None]
  - Uterine perforation [None]
  - Device dislocation [None]
